FAERS Safety Report 14445827 (Version 1)
Quarter: 2018Q1

REPORT INFORMATION
  Report Type: Report from Study
  Country: JP (occurrence: JP)
  Receive Date: 20180126
  Receipt Date: 20180126
  Transmission Date: 20180509
  Serious: Yes (Death, Other)
  Sender: FDA-Public Use
  Company Number: JP-ROCHE-2062036

PATIENT

DRUGS (5)
  1. PROCARBAZINE [Suspect]
     Active Substance: PROCARBAZINE
     Indication: CENTRAL NERVOUS SYSTEM LYMPHOMA
     Dosage: DAY 1-7
     Route: 048
  2. VINCRISTINE [Suspect]
     Active Substance: VINCRISTINE
     Indication: CENTRAL NERVOUS SYSTEM LYMPHOMA
     Dosage: DAY 2
     Route: 042
  3. RITUXIMAB. [Suspect]
     Active Substance: RITUXIMAB
     Indication: CENTRAL NERVOUS SYSTEM LYMPHOMA
     Dosage: ON DAY 1
     Route: 041
  4. METHOTREXATE. [Suspect]
     Active Substance: METHOTREXATE
     Indication: CENTRAL NERVOUS SYSTEM LYMPHOMA
     Dosage: 3.5 G/M2/2H ON DAY 2
     Route: 065
  5. CYTARABINE. [Suspect]
     Active Substance: CYTARABINE
     Indication: CENTRAL NERVOUS SYSTEM LYMPHOMA
     Dosage: 3 G/M2 ON DAYS 1-2
     Route: 042

REACTIONS (11)
  - Leukopenia [Unknown]
  - Hypokalaemia [Unknown]
  - Gastrointestinal haemorrhage [Unknown]
  - Anaemia [Unknown]
  - Nausea [Unknown]
  - Decreased appetite [Unknown]
  - Hyponatraemia [Unknown]
  - Cognitive disorder [Unknown]
  - Death [Fatal]
  - Neutropenia [Recovered/Resolved]
  - Bone marrow failure [Recovered/Resolved]
